FAERS Safety Report 18464025 (Version 1)
Quarter: 2020Q4

REPORT INFORMATION
  Report Type: Report from Study
  Country: FR (occurrence: FR)
  Receive Date: 20201104
  Receipt Date: 20201104
  Transmission Date: 20210114
  Serious: Yes (Hospitalization, Other)
  Sender: FDA-Public Use
  Company Number: FR-JAZZ-2019-FR-014745

PATIENT

DRUGS (14)
  1. BACTRIM [Concomitant]
     Active Substance: SULFAMETHOXAZOLE\TRIMETHOPRIM
     Indication: BACTERIAL INFECTION
     Dosage: 800 MG
     Route: 048
     Dates: start: 20190819
  2. AMOXICILLIN. [Concomitant]
     Active Substance: AMOXICILLIN
     Indication: BACTERIAL INFECTION
     Dosage: 2 G
     Route: 048
     Dates: start: 20190808
  3. DEFITELIO [Suspect]
     Active Substance: DEFIBROTIDE SODIUM
     Dosage: 12.50 MG/KG/DAY
     Dates: start: 20190727
  4. ZELITREX [Concomitant]
     Active Substance: VALACYCLOVIR HYDROCHLORIDE
     Indication: ANTIVIRAL TREATMENT
     Dosage: 1 G
     Route: 048
     Dates: start: 20190816
  5. RITUXIMAB. [Concomitant]
     Active Substance: RITUXIMAB
     Indication: EPSTEIN-BARR VIRUS INFECTION
     Dosage: UNK
     Route: 042
     Dates: start: 20190904, end: 20190916
  6. FUROSEMIDE. [Concomitant]
     Active Substance: FUROSEMIDE
     Indication: VENOOCCLUSIVE LIVER DISEASE
  7. NOXAFIL [Concomitant]
     Active Substance: POSACONAZOLE
     Indication: ANTIVIRAL TREATMENT
     Dosage: 300 G
     Route: 048
     Dates: start: 20190807
  8. DEFITELIO [Suspect]
     Active Substance: DEFIBROTIDE SODIUM
     Indication: VENOOCCLUSIVE LIVER DISEASE
     Dosage: 25 MG/KG/DAY
     Route: 042
     Dates: start: 20190715
  9. NEORAL [Concomitant]
     Active Substance: CYCLOSPORINE
     Indication: GRAFT VERSUS HOST DISEASE
     Dosage: 140 MG
     Route: 048
     Dates: start: 20190722, end: 20190920
  10. CORTANCYL [Concomitant]
     Active Substance: PREDNISONE
     Indication: GRAFT VERSUS HOST DISEASE
     Dosage: 4 MG
     Route: 048
     Dates: start: 20190806, end: 20190919
  11. DEFITELIO [Suspect]
     Active Substance: DEFIBROTIDE SODIUM
     Dosage: 6.25 MG/KG/DAY
     Dates: end: 20190730
  12. NOVORAPID [Concomitant]
     Active Substance: INSULIN ASPART
     Indication: HYPOGLYCAEMIA
     Dosage: UNK
     Route: 058
     Dates: start: 20190814
  13. LANTUS [Concomitant]
     Active Substance: INSULIN GLARGINE
     Indication: HYPOGLYCAEMIA
     Dosage: UNK
     Route: 058
     Dates: start: 20190814
  14. SPIRONOLACTONE. [Concomitant]
     Active Substance: SPIRONOLACTONE
     Indication: VENOOCCLUSIVE LIVER DISEASE

REACTIONS (4)
  - Cystitis haemorrhagic [Recovered/Resolved]
  - Intentional product use issue [Unknown]
  - Intentional product use issue [Unknown]
  - Acute graft versus host disease [Unknown]

NARRATIVE: CASE EVENT DATE: 20190715
